FAERS Safety Report 8420916-9 (Version None)
Quarter: 2012Q2

REPORT INFORMATION
  Report Type: 
  Country: None (occurrence: None)
  Receive Date: 20120608
  Receipt Date: 20120605
  Transmission Date: 20120825
  Serious: Yes (Other)
  Sender: FDA-Public Use
  Company Number: US-PFIZER INC-2012135748

PATIENT
  Sex: Female
  Weight: 59.41 kg

DRUGS (6)
  1. CYMBALTA [Suspect]
     Indication: BLOOD PRESSURE
     Dosage: UNK
  2. PRISTIQ [Suspect]
     Indication: DEPRESSION
     Dosage: 50 MG, DAILY
     Dates: start: 20110101
  3. PRISTIQ [Suspect]
     Indication: ANXIETY
  4. AMBIEN [Concomitant]
     Indication: INSOMNIA
     Dosage: 5 OR 10 MG AS NEEDED
  5. LEVOTHYROXINE [Concomitant]
     Indication: THYROID DISORDER
     Dosage: 75 MG, DAILY
  6. KLONOPIN [Concomitant]
     Indication: ANXIETY
     Dosage: UNK, AS NEEDED

REACTIONS (8)
  - DEPRESSION [None]
  - SUICIDAL IDEATION [None]
  - DRUG INEFFECTIVE [None]
  - DIZZINESS [None]
  - CONSTIPATION [None]
  - DRY MOUTH [None]
  - WITHDRAWAL SYNDROME [None]
  - HEADACHE [None]
